FAERS Safety Report 6551026-3 (Version None)
Quarter: 2010Q1

REPORT INFORMATION
  Report Type: 
  Country: None (occurrence: None)
  Receive Date: 20100122
  Receipt Date: 20100122
  Transmission Date: 20100710
  Serious: Yes (Other)
  Sender: FDA-Public Use
  Company Number: None

PATIENT
  Sex: Female
  Weight: 88.4514 kg

DRUGS (1)
  1. TYLENOL PM EXTRA STRENGTH MCNEIL [Suspect]
     Indication: ARTHRALGIA
     Dosage: 2 CAPLETS NIGHTLY PO
     Route: 048
     Dates: start: 20100108, end: 20100116

REACTIONS (4)
  - DIARRHOEA [None]
  - NAUSEA [None]
  - PRODUCT QUALITY ISSUE [None]
  - RASH [None]
